FAERS Safety Report 13475138 (Version 2)
Quarter: 2017Q2

REPORT INFORMATION
  Report Type: Spontaneous
  Country: CH (occurrence: CH)
  Receive Date: 20170424
  Receipt Date: 20170515
  Transmission Date: 20170830
  Serious: Yes (Hospitalization)
  Sender: FDA-Public Use
  Company Number: CH-PFIZER INC-2017177708

PATIENT
  Age: 78 Year
  Sex: Female

DRUGS (17)
  1. NOVALGIN [Concomitant]
     Active Substance: METAMIZOLE SODIUM
     Dosage: 500 MG, 1X/DAY
  2. TARGIN [Concomitant]
     Active Substance: NALOXONE HYDROCHLORIDE\OXYCODONE HYDROCHLORIDE
     Dosage: 0.5 DF, 1X/DAY (1 DOSAGE FORM 10 MG OXYCODON, 5 MG NALOXON)
  3. REDORMIN [Concomitant]
     Dosage: 500 MG, 2X/DAY (2 IN 1 D)
  4. SAROTEN [Concomitant]
     Active Substance: AMITRIPTYLINE
     Dosage: 25 MG, 1X/DAY (1 IN 1 D)
  5. CALPEROS D3 [Concomitant]
     Active Substance: CALCIUM CARBONATE\CHOLECALCIFEROL
     Dosage: 1 DF, 1X/DAY (1 IN 1 D)
  6. ADALAT CRONO [Concomitant]
     Active Substance: NIFEDIPINE
     Dosage: 30 MG, 1X/DAY (1 IN 1 D)
  7. ACIDUM FOLICUM STREULI [Concomitant]
     Active Substance: FOLIC ACID
     Indication: RHEUMATOID ARTHRITIS
     Dosage: 5 MG, WEEKLY (1 IN 1 W)
  8. MAGNESIOCARD [Concomitant]
     Active Substance: MAGNESIUM ASPARTATE HYDROCHLORIDE
     Dosage: 10 MMOL, 1X/DAY (1 IN 1 D)
  9. CONDROSULF [Concomitant]
     Active Substance: SODIUM CHONDROITIN SULFATE
     Dosage: 800 MG, 1X/DAY (1 IN 1 D)
  10. ATACAND [Concomitant]
     Active Substance: CANDESARTAN CILEXETIL
     Dosage: 8 MG, 1X/DAY (1 IN 1 D)
  11. MAGNEGON [Concomitant]
     Dosage: 120 MG, 1X/DAY (1 IN 1 D)
  12. TILUR [Concomitant]
     Active Substance: ACEMETACIN
     Dosage: 90 MG, 1X/DAY
  13. PANTOPRAZOL [Concomitant]
     Active Substance: PANTOPRAZOLE SODIUM
     Dosage: 40 MG, 1X/DAY (1 IN 1 D)
  14. LACRYVISC [Concomitant]
     Dosage: UNK
  15. DAFALGAN [Concomitant]
     Active Substance: ACETAMINOPHEN
     Dosage: 500 MG, 4X/DAY (4 IN 1 D)
  16. METHOTREXATE SODIUM. [Suspect]
     Active Substance: METHOTREXATE SODIUM
     Indication: RHEUMATOID ARTHRITIS
     Dosage: 15 MG,1 IN 1 W
     Route: 048
     Dates: end: 20170116
  17. VI-DE 3 [Concomitant]
     Active Substance: CHOLECALCIFEROL
     Dosage: UNK

REACTIONS (4)
  - Acute prerenal failure [Recovered/Resolved]
  - Lymphadenitis [Recovered/Resolved]
  - Lymphangitis [Recovered/Resolved]
  - Cellulitis [Recovered/Resolved]

NARRATIVE: CASE EVENT DATE: 20161116
